FAERS Safety Report 7969728-0 (Version None)
Quarter: 2011Q4

REPORT INFORMATION
  Report Type: 
  Country: None (occurrence: None)
  Receive Date: 20111121
  Receipt Date: 20110816
  Transmission Date: 20120403
  Serious: No
  Sender: FDA-Public Use
  Company Number: 1000022918

PATIENT
  Age: 56 Year
  Sex: Female

DRUGS (8)
  1. VIIBRYD [Suspect]
     Indication: DEPRESSION
     Dosage: 10MG (10 MG, 1 IN 1 D), ORAL
     Route: 049
     Dates: start: 20110811
  2. ASA (ACETYLSALICYLIC ACID) (ACETYLSALICYLIC ACID) [Concomitant]
  3. INDERAL (PROPRANOL HYDROCHLORIDE) (PROPRANOL HYDROCHLORIDE) [Concomitant]
  4. AMITRIPTYLINE (AMITRIPTYLINE) (AMITRIPTYLINE) [Concomitant]
  5. TRAMADOL HCL [Concomitant]
  6. XANAX [Concomitant]
  7. METHADONE (METHADONE) (METHADONE) [Concomitant]
  8. SEROQUEL (QUETIAPINE FUMARATE) (QUETIAPINE FUMARATE) [Concomitant]

REACTIONS (11)
  - DIARRHOEA [None]
  - NAUSEA [None]
  - FIBROMYALGIA [None]
  - DEPRESSION [None]
  - MIGRAINE [None]
  - PAIN IN JAW [None]
  - LETHARGY [None]
  - EAR PAIN [None]
  - HEADACHE [None]
  - MUSCULOSKELETAL STIFFNESS [None]
  - SOMNOLENCE [None]
